FAERS Safety Report 23361699 (Version 2)
Quarter: 2024Q1

REPORT INFORMATION
  Report Type: Spontaneous
  Country: US (occurrence: US)
  Receive Date: 20240103
  Receipt Date: 20240203
  Transmission Date: 20240409
  Serious: No
  Sender: FDA-Public Use
  Company Number: US-Ipsen Biopharmaceuticals, Inc.-2023-28415

PATIENT
  Age: 20 Year
  Sex: Male
  Weight: 71.21 kg

DRUGS (13)
  1. TAZVERIK [Suspect]
     Active Substance: TAZEMETOSTAT HYDROBROMIDE
     Indication: Brain neoplasm malignant
     Dosage: 100 MG TWICE DAILY
     Route: 048
     Dates: start: 20231202
  2. TAZVERIK [Suspect]
     Active Substance: TAZEMETOSTAT HYDROBROMIDE
     Indication: Carcinoid tumour
     Dosage: (1) 200 MG TABLETS DAILY AND THEN (2) 200 MG BID
     Route: 048
  3. TAZVERIK [Suspect]
     Active Substance: TAZEMETOSTAT HYDROBROMIDE
     Indication: Off label use
     Dosage: 800 MG TWICE DAILY
     Route: 048
     Dates: start: 20231207
  4. CYCLOPHOSPHAMIDE [Concomitant]
     Active Substance: CYCLOPHOSPHAMIDE
  5. DIVALPROEX SODIUM [Concomitant]
     Active Substance: DIVALPROEX SODIUM
  6. LYNPARZA [Concomitant]
     Active Substance: OLAPARIB
  7. VITAMIN C [Concomitant]
     Active Substance: ASCORBIC ACID
  8. SURVAXSM [Concomitant]
  9. TAGRISSO [Concomitant]
     Active Substance: OSIMERTINIB
  10. DEXAMETHASONE [Concomitant]
     Active Substance: DEXAMETHASONE
  11. MODAFINIL [Concomitant]
     Active Substance: MODAFINIL
  12. PROZAC [Concomitant]
     Active Substance: FLUOXETINE HYDROCHLORIDE
  13. VALPRIOC [Concomitant]

REACTIONS (7)
  - Fatigue [Unknown]
  - Diarrhoea [Unknown]
  - Malaise [Not Recovered/Not Resolved]
  - Dysphagia [Not Recovered/Not Resolved]
  - Condition aggravated [Not Recovered/Not Resolved]
  - Off label use [Unknown]
  - Off label use [Unknown]
